FAERS Safety Report 5337971-5 (Version None)
Quarter: 2007Q2

REPORT INFORMATION
  Report Type: 
  Country: None (occurrence: None)
  Receive Date: 20070530
  Receipt Date: 20070522
  Transmission Date: 20071010
  Serious: Yes (Disabling)
  Sender: FDA-Public Use
  Company Number: PHRM2007FR01113

PATIENT
  Age: 57 Year
  Sex: Male
  Weight: 88 kg

DRUGS (10)
  1. ZOMETA [Suspect]
     Indication: METASTASES TO BONE
     Dosage: UNK, UNK
     Route: 042
     Dates: start: 20000629, end: 20050801
  2. PLATINUM COMPOUNDS [Concomitant]
  3. GEMZAR [Concomitant]
     Route: 042
     Dates: start: 20060401
  4. GEMZAR [Concomitant]
     Route: 042
     Dates: start: 20000629
  5. NEURONTIN [Concomitant]
     Dosage: 3 G DAILY
  6. TROSPIUM CHLORIDE [Concomitant]
     Dosage: 2 DF PER DAY
  7. DEROXAT [Concomitant]
     Dosage: 1 DF DAILY
  8. SKENAN [Concomitant]
  9. ACTISKENAN [Concomitant]
  10. MYOLASTAN [Concomitant]

REACTIONS (11)
  - BONE GRAFT [None]
  - COMPUTERISED TOMOGRAM ABNORMAL [None]
  - ENDODONTIC PROCEDURE [None]
  - IMPAIRED HEALING [None]
  - JOINT SWELLING [None]
  - OSTEOLYSIS [None]
  - OSTEONECROSIS [None]
  - PRIMARY SEQUESTRUM [None]
  - TOOTH DISORDER [None]
  - TOOTH EXTRACTION [None]
  - TOOTHACHE [None]
